FAERS Safety Report 8110975 (Version 7)
Quarter: 2013Q3

REPORT INFORMATION
  Report Type: Spontaneous
  Country: US (occurrence: None)
  Receive Date: 20110817
  Receipt Date: 20130830
  Transmission Date: 20140515
  Serious: Yes (Hospitalization, Other)
  Sender: FDA-Public Use
  Company Number: US-2011-10562

PATIENT
  Age: 48 Year
  Sex: Female

DRUGS (9)
  1. TOLVAPTAN [Suspect]
     Indication: CONGENITAL CYSTIC KIDNEY DISEASE
     Dosage: 60 MG MILLIGRAM(S), DAILY DOSE, ORAL
     Route: 048
     Dates: start: 20110615, end: 20110714
  2. LISINOPRIL (LISINOPRIL) [Concomitant]
  3. VITAMIN D (ERGOCALCIFEROL) [Concomitant]
  4. PROCRIT [Concomitant]
  5. PRILOSEC [Concomitant]
  6. PAXIL [Concomitant]
  7. OMEGA-3 (DOCOSAHEXANOIC ACID, EICOSAPENTAENOIC ACID) [Concomitant]
  8. MULTI VITAMIN AND MINERAL + SELENIUM (CHOLINE BITARTRATE, MINERALS NOS, VITAMINS NOS) [Concomitant]
  9. TYLENOL (PARACETAMOL) [Concomitant]

REACTIONS (10)
  - Pyelonephritis [None]
  - Renal failure acute [None]
  - Anaemia [None]
  - Vaginal haemorrhage [None]
  - Blood sodium decreased [None]
  - Bacterial test positive [None]
  - Hydronephrosis [None]
  - Atelectasis [None]
  - Pleural effusion [None]
  - Nephrolithiasis [None]
